FAERS Safety Report 19100649 (Version 4)
Quarter: 2021Q2

REPORT INFORMATION
  Report Type: Report from Study
  Country: US (occurrence: US)
  Receive Date: 20210407
  Receipt Date: 20210616
  Transmission Date: 20210717
  Serious: Yes (Hospitalization, Other)
  Sender: FDA-Public Use
  Company Number: NVSC2021US074600

PATIENT
  Age: 77 Year
  Sex: Female

DRUGS (5)
  1. SPIRIVA [Concomitant]
     Active Substance: TIOTROPIUM BROMIDE MONOHYDRATE
     Indication: PRODUCT USED FOR UNKNOWN INDICATION
     Dosage: UNK
     Route: 065
  2. WATER PILLS [Concomitant]
     Active Substance: UNSPECIFIED INGREDIENT
     Indication: PRODUCT USED FOR UNKNOWN INDICATION
     Dosage: UNK
     Route: 065
  3. MAGNESIUM [Concomitant]
     Active Substance: MAGNESIUM
     Indication: PRODUCT USED FOR UNKNOWN INDICATION
     Dosage: UNK
     Route: 065
  4. ENTRESTO [Suspect]
     Active Substance: SACUBITRIL\VALSARTAN
     Indication: CARDIAC FAILURE
     Dosage: 1 DF, BID
     Route: 065
     Dates: start: 20210318
  5. ENTRESTO [Suspect]
     Active Substance: SACUBITRIL\VALSARTAN
     Dosage: UNK(HALF IN THE MORNING AND 1 TAB IN EVENING)
     Route: 065

REACTIONS (17)
  - Escherichia bacteraemia [Unknown]
  - Heart rate increased [Unknown]
  - Gastritis [Unknown]
  - Weight decreased [Unknown]
  - Diarrhoea [Unknown]
  - Complication associated with device [Unknown]
  - Cystitis [Unknown]
  - Malaise [Unknown]
  - Impaired gastric emptying [Unknown]
  - Dizziness [Unknown]
  - Cough [Unknown]
  - Decreased appetite [Unknown]
  - Nausea [Unknown]
  - Lethargy [Unknown]
  - Wrong technique in product usage process [Not Recovered/Not Resolved]
  - Pulmonary oedema [Unknown]
  - Pulmonary fibrosis [Unknown]

NARRATIVE: CASE EVENT DATE: 202103
